FAERS Safety Report 14679040 (Version 3)
Quarter: 2018Q3

REPORT INFORMATION
  Report Type: Report from Study
  Country: US (occurrence: US)
  Receive Date: 20180326
  Receipt Date: 20180701
  Transmission Date: 20181010
  Serious: Yes (Hospitalization, Other)
  Sender: FDA-Public Use
  Company Number: PHEH2018US009992

PATIENT
  Sex: Female

DRUGS (1)
  1. COSENTYX [Suspect]
     Active Substance: SECUKINUMAB
     Indication: SAPHO SYNDROME
     Dosage: UNK
     Route: 065
     Dates: start: 20180309, end: 201804

REACTIONS (4)
  - Vitamin D deficiency [Unknown]
  - Malaise [Unknown]
  - Product use in unapproved indication [Unknown]
  - Pyrexia [Unknown]
